FAERS Safety Report 23678747 (Version 1)
Quarter: 2024Q1

REPORT INFORMATION
  Report Type: Spontaneous
  Country: GB (occurrence: GB)
  Receive Date: 20240327
  Receipt Date: 20240327
  Transmission Date: 20240409
  Serious: Yes (Disabling, Other)
  Sender: FDA-Public Use
  Company Number: None

PATIENT
  Sex: Male

DRUGS (2)
  1. AMLODIPINE [Suspect]
     Active Substance: AMLODIPINE BESYLATE
     Indication: Product used for unknown indication
     Dosage: UNK
     Route: 065
  2. RAMIPRIL [Suspect]
     Active Substance: RAMIPRIL
     Indication: Product used for unknown indication
     Dosage: UNK
     Route: 065

REACTIONS (9)
  - Chest pain [Unknown]
  - Hypertension [Unknown]
  - Peripheral swelling [Unknown]
  - Fall [Unknown]
  - Blood pressure abnormal [Unknown]
  - Paraesthesia [Unknown]
  - Skin discolouration [Unknown]
  - Balance disorder [Unknown]
  - Limb discomfort [Unknown]
